FAERS Safety Report 5579034-X (Version None)
Quarter: 2007Q4

REPORT INFORMATION
  Report Type: 
  Country: None (occurrence: None)
  Receive Date: 20071227
  Receipt Date: 20071218
  Transmission Date: 20080405
  Serious: Yes (Other)
  Sender: FDA-Public Use
  Company Number: 2007SP025227

PATIENT
  Age: 43 Year
  Sex: Female

DRUGS (2)
  1. INTRON A [Suspect]
     Indication: HEPATITIS C
     Dosage: QD; SC
     Route: 058
     Dates: start: 20070601, end: 20071001
  2. RIBAVIRIN [Suspect]
     Indication: HEPATITIS C
     Dosage: PO
     Route: 048
     Dates: start: 20070601, end: 20071001

REACTIONS (4)
  - DRUG INEFFECTIVE [None]
  - DRY MOUTH [None]
  - DYSPHONIA [None]
  - FACIAL PALSY [None]
